FAERS Safety Report 8488080-8 (Version None)
Quarter: 2012Q3

REPORT INFORMATION
  Report Type: 
  Country: None (occurrence: None)
  Receive Date: 20120705
  Receipt Date: 20120628
  Transmission Date: 20120928
  Serious: Yes (Other)
  Sender: FDA-Public Use
  Company Number: BR-PFIZER INC-2012149762

PATIENT
  Age: 43 Year
  Sex: Male

DRUGS (3)
  1. TRILEPTAL [Concomitant]
     Indication: CONVULSION
     Dosage: ONE TABLET OF 600MG EVERY 8 HOURS AND HALF TABLET OF 300MG EVERY 12 HOURS
     Dates: start: 20020101
  2. LYRICA [Suspect]
     Indication: PAIN IN EXTREMITY
     Dosage: 75 MG, 1X/DAY
     Route: 048
     Dates: start: 20120101
  3. LYRICA [Suspect]
     Indication: SLEEP DISORDER
     Dosage: 150 MG (2X 75MG), AT NIGHT
     Dates: start: 20120101

REACTIONS (2)
  - PAIN [None]
  - CONVULSION [None]
